FAERS Safety Report 24990198 (Version 2)
Quarter: 2025Q1

REPORT INFORMATION
  Report Type: Spontaneous
  Country: JP (occurrence: JP)
  Receive Date: 20250220
  Receipt Date: 20250310
  Transmission Date: 20250409
  Serious: Yes (Life-Threatening, Hospitalization, Other)
  Sender: IDORSIA PHARMACEUTICALS
  Company Number: JP-IDORSIA-009396-2025-JP

PATIENT
  Age: 8 Decade
  Sex: Male

DRUGS (6)
  1. QUVIVIQ [Suspect]
     Active Substance: DARIDOREXANT
     Indication: Insomnia
     Dosage: 50 MG, QD
     Route: 048
     Dates: start: 20250114, end: 20250127
  2. QUVIVIQ [Suspect]
     Active Substance: DARIDOREXANT
     Route: 048
     Dates: start: 20250104, end: 20250113
  3. QUVIVIQ [Suspect]
     Active Substance: DARIDOREXANT
     Route: 048
     Dates: start: 20241227, end: 20250103
  4. MIRTAZAPINE [Suspect]
     Active Substance: MIRTAZAPINE
     Indication: Product used for unknown indication
     Route: 048
     Dates: start: 20241227, end: 20250113
  5. MIRTAZAPINE [Suspect]
     Active Substance: MIRTAZAPINE
     Route: 048
     Dates: start: 20250114, end: 20250120
  6. MIRTAZAPINE [Suspect]
     Active Substance: MIRTAZAPINE
     Route: 048
     Dates: start: 20250121

REACTIONS (1)
  - Suicide attempt [Unknown]

NARRATIVE: CASE EVENT DATE: 20250127
